FAERS Safety Report 7648242-6 (Version None)
Quarter: 2011Q3

REPORT INFORMATION
  Report Type: 
  Country: None (occurrence: None)
  Receive Date: 20110801
  Receipt Date: 20110726
  Transmission Date: 20111222
  Serious: Yes (Hospitalization, Other)
  Sender: FDA-Public Use
  Company Number: US-ACTELION-A-US2008-22559

PATIENT

DRUGS (23)
  1. TRACLEER [Suspect]
     Indication: PULMONARY ARTERIAL HYPERTENSION
     Dosage: 62.5
     Route: 048
     Dates: start: 20051202, end: 20110618
  2. AMITRIPTYLINE HCL [Concomitant]
  3. DEMADEX [Concomitant]
  4. FORTICAL [Concomitant]
  5. PLAVIX [Concomitant]
  6. GLYBURIDE [Concomitant]
  7. GABAPENTIN [Concomitant]
  8. LOVAZA [Concomitant]
  9. NEXIUM [Concomitant]
  10. ZESTRIL [Concomitant]
  11. CRESTOR [Suspect]
  12. HYDRALAZINE HCL [Concomitant]
  13. MECLIZIN [Concomitant]
  14. TRAMADOL HCL [Concomitant]
  15. COUMADIN [Concomitant]
  16. LEVOTHYROXINE SODIUM [Concomitant]
  17. TOPROL-XL [Concomitant]
  18. TRACLEER [Suspect]
     Dosage: 125
     Route: 048
     Dates: start: 20031124, end: 20110618
  19. MULTI-VITAMIN [Concomitant]
  20. TRICOR [Concomitant]
  21. AMARYL [Concomitant]
  22. GLUCOSAMINE [Concomitant]
  23. AMLODIPINE [Concomitant]

REACTIONS (9)
  - RENAL IMPAIRMENT [None]
  - CARDIAC FAILURE CONGESTIVE [None]
  - DIZZINESS [None]
  - ASPARTATE AMINOTRANSFERASE INCREASED [None]
  - LIVER FUNCTION TEST ABNORMAL [None]
  - FLUID OVERLOAD [None]
  - ALANINE AMINOTRANSFERASE INCREASED [None]
  - MALAISE [None]
  - PULMONARY ARTERIAL HYPERTENSION [None]
